FAERS Safety Report 5211109-7 (Version None)
Quarter: 2007Q1

REPORT INFORMATION
  Report Type: 
  Country: None (occurrence: None)
  Receive Date: 20070117
  Receipt Date: 20070105
  Transmission Date: 20070707
  Serious: Yes (Hospitalization, Other)
  Sender: FDA-Public Use
  Company Number: FR-PFIZER INC-2006132962

PATIENT
  Sex: Male
  Weight: 83 kg

DRUGS (5)
  1. SUTENT [Suspect]
     Indication: RENAL CELL CARCINOMA STAGE UNSPECIFIED
     Route: 048
  2. SUTENT [Suspect]
  3. ALLOPURINOL SODIUM [Concomitant]
  4. METFORMIN [Concomitant]
  5. ASPIRIN [Concomitant]

REACTIONS (7)
  - ABDOMINAL PAIN [None]
  - CHILLS [None]
  - CHOLANGITIS [None]
  - CONDITION AGGRAVATED [None]
  - HYPERTHERMIA [None]
  - PAIN [None]
  - PYREXIA [None]
